FAERS Safety Report 26092785 (Version 1)
Quarter: 2025Q4

REPORT INFORMATION
  Report Type: Spontaneous
  Country: US (occurrence: None)
  Receive Date: 20251126
  Receipt Date: 20251126
  Transmission Date: 20260117
  Serious: Yes (Hospitalization)
  Sender: FDA-CTU
  Company Number: None

PATIENT
  Age: 33 Year
  Sex: Female
  Weight: 68.4 kg

DRUGS (4)
  1. OCTAGAM IMMUNE GLOBULIN (HUMAN) [Suspect]
     Active Substance: HUMAN IMMUNOGLOBULIN G
     Indication: Myasthenia gravis
     Dosage: OTHER FREQUENCY : OVER 2 DAY, Q4 WKS;?
     Route: 042
     Dates: start: 20251010
  2. SODIUM CHLORIDE [Concomitant]
     Active Substance: SODIUM CHLORIDE
  3. ACETAMINOPHEN [Concomitant]
     Active Substance: ACETAMINOPHEN
  4. LORATADINE [Concomitant]
     Active Substance: LORATADINE

REACTIONS (1)
  - Meningitis [None]

NARRATIVE: CASE EVENT DATE: 20251121
